FAERS Safety Report 14511610 (Version 1)
Quarter: 2018Q1

REPORT INFORMATION
  Report Type: Report from Study
  Country: GB (occurrence: GB)
  Receive Date: 20180209
  Receipt Date: 20180209
  Transmission Date: 20180509
  Serious: Yes (Other)
  Sender: FDA-Public Use
  Company Number: GB-CELLTRION INC.-2017GB015615

PATIENT

DRUGS (4)
  1. REMSIMA [Suspect]
     Active Substance: INFLIXIMAB
     Dosage: 505 MG, UNK
     Route: 065
     Dates: start: 20170907
  2. REMSIMA [Suspect]
     Active Substance: INFLIXIMAB
     Indication: CROHN^S DISEASE
     Dosage: 500 MG, 8 WEEKLY
     Route: 065
     Dates: start: 20170517
  3. REMSIMA [Suspect]
     Active Substance: INFLIXIMAB
     Dosage: 500 MG, UNK
     Route: 065
     Dates: start: 20171102
  4. INFLECTRA [Suspect]
     Active Substance: INFLIXIMAB-DYYB
     Indication: PRODUCT USED FOR UNKNOWN INDICATION
     Dosage: UNK
     Route: 065
     Dates: end: 20170322

REACTIONS (1)
  - Abortion spontaneous [Unknown]
